FAERS Safety Report 8183191-9 (Version None)
Quarter: 2012Q1

REPORT INFORMATION
  Report Type: 
  Country: None (occurrence: None)
  Receive Date: 20120201
  Receipt Date: 20110203
  Transmission Date: 20120608
  Serious: Yes (Hospitalization)
  Sender: FDA-Public Use
  Company Number: 265864USA

PATIENT

DRUGS (1)
  1. PROPOXYPHENE NAPSYLATE AND ACETAMINOPHEN [Suspect]
     Dosage: 100 MG/650 MG

REACTIONS (2)
  - MEMORY IMPAIRMENT [None]
  - ASTHENIA [None]
